FAERS Safety Report 8905295 (Version 1)
Quarter: 2012Q4

REPORT INFORMATION
  Report Type: 
  Country: CA (occurrence: CA)
  Receive Date: 20121111
  Receipt Date: 20121111
  Transmission Date: 20130627
  Serious: Yes (Other)
  Sender: FDA-Public Use
  Company Number: PHHO2005CA10600

PATIENT
  Age: 47 Year
  Sex: Female

DRUGS (4)
  1. SANDOSTATIN LAR (PATIENT BASIS) [Suspect]
     Indication: ACROMEGALY
     Dosage: 30 mg, once a month
     Dates: start: 20041210
  2. SANDOSTATIN LAR (PATIENT BASIS) [Suspect]
     Dosage: 40 mg, once a month
     Route: 030
  3. TOLTERODINE L-TARTRATE [Concomitant]
  4. FLOVENT [Concomitant]

REACTIONS (34)
  - Bronchitis [Unknown]
  - Pneumonia [Unknown]
  - Lung infection [Unknown]
  - Stress urinary incontinence [Unknown]
  - Depression [Unknown]
  - Weight decreased [Unknown]
  - Sinusitis [Unknown]
  - Nasal mucosal hypertrophy [Unknown]
  - Post procedural discharge [Unknown]
  - Swelling [Unknown]
  - Pain [Unknown]
  - Alopecia [Unknown]
  - Hyperglycaemia [Unknown]
  - Vomiting [Unknown]
  - Diarrhoea [Unknown]
  - Blood growth hormone increased [Unknown]
  - Fatigue [Not Recovered/Not Resolved]
  - Insomnia [Unknown]
  - Hypertension [Unknown]
  - Intraocular pressure increased [Unknown]
  - Eye contusion [Unknown]
  - Sleep disorder [Unknown]
  - Oedema peripheral [Unknown]
  - Nausea [Unknown]
  - Abdominal pain [Unknown]
  - Abdominal distension [Unknown]
  - Blood pressure fluctuation [Unknown]
  - Urinary incontinence [Unknown]
  - Faeces discoloured [Unknown]
  - Dyspnoea [Unknown]
  - Hypothyroidism [Unknown]
  - Weight increased [Unknown]
  - Tongue disorder [Unknown]
  - Oedema [Unknown]
